FAERS Safety Report 18635793 (Version 2)
Quarter: 2021Q4

REPORT INFORMATION
  Report Type: Report from Study
  Country: AR (occurrence: IL)
  Receive Date: 20201218
  Receipt Date: 20211028
  Transmission Date: 20220303
  Serious: Yes (Hospitalization, Other)
  Sender: FDA-Public Use
  Company Number: AR-SHIRE-AR201408982

PATIENT
  Age: 65 Year
  Sex: Male
  Weight: 87.08 kg

DRUGS (1)
  1. VELAGLUCERASE ALFA [Suspect]
     Active Substance: VELAGLUCERASE ALFA
     Indication: Gaucher^s disease
     Dosage: 60 IU/KG, 1X/2WKS
     Route: 041
     Dates: start: 20071127, end: 20150715

REACTIONS (1)
  - Adenocarcinoma of colon [Recovered/Resolved with Sequelae]

NARRATIVE: CASE EVENT DATE: 20140601
